FAERS Safety Report 6804468-2 (Version None)
Quarter: 2010Q2

REPORT INFORMATION
  Report Type: 
  Country: None (occurrence: None)
  Receive Date: 20100628
  Receipt Date: 20061219
  Transmission Date: 20101027
  Serious: No
  Sender: FDA-Public Use
  Company Number: US-PFIZER INC-2007021999

PATIENT
  Sex: Female

DRUGS (3)
  1. SU-011,248 [Suspect]
     Indication: RENAL CELL CARCINOMA
  2. SU-011,248 [Suspect]
  3. SU-011,248 [Suspect]

REACTIONS (1)
  - DYSGEUSIA [None]
